FAERS Safety Report 5713295-9 (Version None)
Quarter: 2008Q2

REPORT INFORMATION
  Report Type: 
  Country: None (occurrence: None)
  Receive Date: 20080422
  Receipt Date: 20080414
  Transmission Date: 20081010
  Serious: Yes (Hospitalization, Other)
  Sender: FDA-Public Use
  Company Number: US-PFIZER INC-2006127160

PATIENT
  Sex: Female
  Weight: 108.9 kg

DRUGS (1)
  1. CELEBREX [Suspect]

REACTIONS (2)
  - ANXIETY [None]
  - THROMBOSIS [None]
